FAERS Safety Report 6771949-X (Version None)
Quarter: 2010Q2

REPORT INFORMATION
  Report Type: 
  Country: None (occurrence: None)
  Receive Date: 20100616
  Receipt Date: 20091112
  Transmission Date: 20101027
  Serious: No
  Sender: FDA-Public Use
  Company Number: US-ASTRAZENECA-2009SE26215

PATIENT
  Sex: Male

DRUGS (2)
  1. RHINOCORT [Suspect]
     Route: 045
     Dates: start: 20020101
  2. RHINOCORT [Suspect]
     Route: 045
     Dates: start: 20020101

REACTIONS (2)
  - MALAISE [None]
  - OFF LABEL USE [None]
